FAERS Safety Report 6807416-4 (Version None)
Quarter: 2010Q2

REPORT INFORMATION
  Report Type: 
  Country: None (occurrence: None)
  Receive Date: 20100629
  Receipt Date: 20090515
  Transmission Date: 20101027
  Serious: No
  Sender: FDA-Public Use
  Company Number: US-PFIZER INC-2008067315

PATIENT
  Sex: Female
  Weight: 88.5 kg

DRUGS (11)
  1. REVATIO [Suspect]
     Indication: PULMONARY HYPERTENSION
     Dosage: 20 MG, 3X/DAY
     Route: 048
     Dates: start: 20080501, end: 20081101
  2. TOPROL-XL [Concomitant]
  3. COUMADIN [Concomitant]
     Indication: THROMBOSIS
  4. COZAAR [Concomitant]
  5. FUROSEMIDE [Concomitant]
  6. LEVOTHYROXINE SODIUM [Concomitant]
  7. GABAPENTIN [Concomitant]
  8. POTASSIUM [Concomitant]
  9. ZOLOFT [Concomitant]
  10. LIPITOR [Concomitant]
  11. LISINOPRIL [Concomitant]
     Indication: HYPERTENSION
     Dosage: UNK

REACTIONS (6)
  - BLOOD GLUCOSE INCREASED [None]
  - HEADACHE [None]
  - OEDEMA PERIPHERAL [None]
  - RESPIRATORY DEPTH INCREASED [None]
  - WEIGHT INCREASED [None]
  - WHEEZING [None]
